FAERS Safety Report 14366116 (Version 5)
Quarter: 2018Q2

REPORT INFORMATION
  Report Type: Report from Study
  Country: US (occurrence: US)
  Receive Date: 20180109
  Receipt Date: 20180414
  Transmission Date: 20180711
  Serious: Yes (Other)
  Sender: FDA-Public Use
  Company Number: US-TESARO, INC.-US-2017TSO03135

PATIENT

DRUGS (6)
  1. ZEJULA [Suspect]
     Active Substance: NIRAPARIB
     Indication: OVARIAN CANCER
     Dosage: 300 MG, QD
     Route: 048
     Dates: start: 20170918
  2. ZEJULA [Suspect]
     Active Substance: NIRAPARIB
     Dosage: 100 MG, QD
     Route: 048
     Dates: start: 20180103
  3. ZEJULA [Suspect]
     Active Substance: NIRAPARIB
     Dosage: 100 MG, QD
     Route: 048
  4. ZEJULA [Suspect]
     Active Substance: NIRAPARIB
     Dosage: 200 MG, QD
     Dates: end: 20171209
  5. ZEJULA [Suspect]
     Active Substance: NIRAPARIB
     Dosage: 200 MG, QD
     Route: 048
  6. ZEJULA [Suspect]
     Active Substance: NIRAPARIB
     Dosage: 100 MG, UNK
     Route: 048

REACTIONS (30)
  - Tremor [Not Recovered/Not Resolved]
  - Stress [Unknown]
  - Insomnia [Not Recovered/Not Resolved]
  - Nausea [Unknown]
  - Red blood cell count decreased [Not Recovered/Not Resolved]
  - Feeling hot [Not Recovered/Not Resolved]
  - Mouth cyst [Recovering/Resolving]
  - Bowel movement irregularity [Not Recovered/Not Resolved]
  - Emotional distress [Unknown]
  - Middle insomnia [Not Recovered/Not Resolved]
  - Palpitations [Not Recovered/Not Resolved]
  - Fatigue [Not Recovered/Not Resolved]
  - Anxiety [Unknown]
  - Hot flush [Not Recovered/Not Resolved]
  - Ulcer [Recovering/Resolving]
  - Dyspepsia [Recovering/Resolving]
  - Constipation [Not Recovered/Not Resolved]
  - Echocardiogram abnormal [Not Recovered/Not Resolved]
  - pH urine decreased [Not Recovered/Not Resolved]
  - Oral pain [Not Recovered/Not Resolved]
  - Hyperhidrosis [Unknown]
  - Musculoskeletal discomfort [Unknown]
  - Blood pressure increased [Recovering/Resolving]
  - Decreased appetite [Not Recovered/Not Resolved]
  - Pain [Not Recovered/Not Resolved]
  - Abdominal distension [Not Recovered/Not Resolved]
  - Abdominal pain upper [Not Recovered/Not Resolved]
  - Heart rate increased [Not Recovered/Not Resolved]
  - Abdominal discomfort [Not Recovered/Not Resolved]
  - Breast pain [Not Recovered/Not Resolved]

NARRATIVE: CASE EVENT DATE: 201709
